FAERS Safety Report 11862404 (Version 4)
Quarter: 2016Q3

REPORT INFORMATION
  Report Type: Spontaneous
  Country: JP (occurrence: JP)
  Receive Date: 20151223
  Receipt Date: 20160815
  Transmission Date: 20161109
  Serious: Yes (Hospitalization)
  Sender: FDA-Public Use
  Company Number: JP-ROCHE-1666540

PATIENT
  Age: 63 Year
  Sex: Female
  Weight: 48 kg

DRUGS (5)
  1. SPIRONOLACTONE. [Concomitant]
     Active Substance: SPIRONOLACTONE
     Indication: OEDEMA
     Route: 048
     Dates: start: 20150910
  2. AVASTIN [Suspect]
     Active Substance: BEVACIZUMAB
     Indication: BREAST CANCER
     Dosage: TREATMENT LINE: 2?COMPLETED TREATMENT CYCLE NUMBER: 3
     Route: 041
     Dates: start: 20151002, end: 20151028
  3. FUROSEMIDE. [Concomitant]
     Active Substance: FUROSEMIDE
     Indication: OEDEMA
     Route: 048
     Dates: start: 20150910
  4. PACLITAXEL. [Concomitant]
     Active Substance: PACLITAXEL
     Indication: BREAST CANCER
     Route: 041
     Dates: start: 20150916
  5. RINDERON V [Concomitant]
     Active Substance: BETAMETHASONE VALERATE
     Indication: OEDEMA
     Route: 048
     Dates: start: 20151003, end: 20160301

REACTIONS (3)
  - Tumour embolism [Recovering/Resolving]
  - Portal vein thrombosis [Recovering/Resolving]
  - Gastric varices haemorrhage [Recovering/Resolving]

NARRATIVE: CASE EVENT DATE: 20151108
